FAERS Safety Report 12092413 (Version 2)
Quarter: 2016Q1

REPORT INFORMATION
  Report Type: Report from Study
  Country: US (occurrence: US)
  Receive Date: 20160219
  Receipt Date: 20160304
  Transmission Date: 20160526
  Serious: Yes (Death)
  Sender: FDA-Public Use
  Company Number: US-HLSUS-2016-US-000048

PATIENT
  Age: 76 Year
  Sex: Female
  Weight: 81.64 kg

DRUGS (11)
  1. TRAMADOL HYDROCHLORIDE. [Concomitant]
     Active Substance: TRAMADOL HYDROCHLORIDE
     Indication: PAIN
     Dosage: 1 TAB TID PRN PAIN
     Route: 048
  2. ASPIR-LOW [Concomitant]
     Active Substance: ASPIRIN
     Dosage: 1 TAB IN AM WITH FOOD
     Route: 048
  3. CLOZARIL [Suspect]
     Active Substance: CLOZAPINE
     Indication: SCHIZOPHRENIA
     Dosage: 3 TAB AM/ 6 TAB QHS
     Route: 048
  4. LASIX [Concomitant]
     Active Substance: FUROSEMIDE
     Dosage: 1 TAB ONCE A DAY FOR 3 DAYS
     Route: 048
  5. OSCAL [Concomitant]
     Active Substance: CALCIUM CARBONATE
     Dosage: 1250 MG 1 TAB PO QAM
     Route: 048
  6. IMODIUM A-D [Concomitant]
     Active Substance: LOPERAMIDE HYDROCHLORIDE
     Indication: DIARRHOEA
     Route: 048
  7. ATENOLOL. [Concomitant]
     Active Substance: ATENOLOL
     Dosage: QHS
     Route: 048
  8. METAMUCIL [Concomitant]
     Active Substance: PLANTAGO SEED
     Dosage: 3 CAPS PO QAM FOR LIFE
     Route: 048
  9. MULTIVITAMINS [Concomitant]
     Active Substance: VITAMINS
     Route: 048
  10. HYDROCHLOROTHIAZIDE. [Concomitant]
     Active Substance: HYDROCHLOROTHIAZIDE
     Dosage: 1 CAP ONCE A DAY
     Route: 048
  11. PRO-AIR ALBUTEROL [Concomitant]
     Dosage: Q 4 HRS PRN
     Route: 048

REACTIONS (2)
  - Breast cancer metastatic [Fatal]
  - Chronic obstructive pulmonary disease [Unknown]

NARRATIVE: CASE EVENT DATE: 2015
